FAERS Safety Report 9836887 (Version 1)
Quarter: 2013Q4

REPORT INFORMATION
  Report Type: Spontaneous
  Country: US (occurrence: None)
  Receive Date: 20131120
  Receipt Date: 20131120
  Transmission Date: 20140711
  Serious: Yes (Other)
  Sender: FDA-Public Use
  Company Number: 1000048848

PATIENT
  Age: 51 Year
  Sex: Female

DRUGS (2)
  1. VIIBRYD (VILAZODONE HYDROCHLORIDE) (10 MILLIGRAM, TABLETS) [Suspect]
     Indication: DEPRESSION
     Route: 048
     Dates: start: 20130910
  2. NEURONTIN (GABAPENTIN) (GABAPENTIN) [Concomitant]

REACTIONS (3)
  - Abdominal distension [None]
  - Nausea [None]
  - Diarrhoea [None]
